FAERS Safety Report 5403247-0 (Version None)
Quarter: 2007Q3

REPORT INFORMATION
  Report Type: 
  Country: None (occurrence: None)
  Receive Date: 20070801
  Receipt Date: 20070727
  Transmission Date: 20080115
  Serious: Yes (Other)
  Sender: FDA-Public Use
  Company Number: US-PFIZER INC-2007062495

PATIENT
  Sex: Female

DRUGS (2)
  1. ZYRTEC [Suspect]
  2. DOXYCYCLINE [Suspect]

REACTIONS (2)
  - DIABETES MELLITUS [None]
  - FUNGAL INFECTION [None]
